FAERS Safety Report 13588614 (Version 1)
Quarter: 2017Q2

REPORT INFORMATION
  Report Type: Spontaneous
  Country: US (occurrence: US)
  Receive Date: 20170529
  Receipt Date: 20170529
  Transmission Date: 20170830
  Serious: No
  Sender: FDA-Public Use
  Company Number: US-TEVA-764678ACC

PATIENT
  Sex: Male

DRUGS (1)
  1. CLONIDINE. [Suspect]
     Active Substance: CLONIDINE
     Route: 065

REACTIONS (2)
  - Syncope [Unknown]
  - Accelerated hypertension [Unknown]
